FAERS Safety Report 14102922 (Version 2)
Quarter: 2017Q4

REPORT INFORMATION
  Report Type: Spontaneous
  Country: GB (occurrence: GB)
  Receive Date: 20171018
  Receipt Date: 20171023
  Transmission Date: 20180321
  Serious: Yes (Hospitalization)
  Sender: FDA-Public Use
  Company Number: GB-VALIDUS PHARMACEUTICALS LLC-GB-2017VAL001456

PATIENT
  Sex: Male

DRUGS (4)
  1. ROCALTROL [Suspect]
     Active Substance: CALCITRIOL
     Dosage: 1 MG, UNK
  2. ROCALTROL [Suspect]
     Active Substance: CALCITRIOL
     Indication: PRODUCT USED FOR UNKNOWN INDICATION
     Dosage: 0.2 ?G, UNK
     Dates: start: 1985
  3. ROCALTROL [Suspect]
     Active Substance: CALCITRIOL
     Dosage: 0.75 ?G, UNK
  4. THYROXINE [Concomitant]
     Active Substance: LEVOTHYROXINE
     Indication: BLOOD CALCIUM ABNORMAL
     Dosage: UNK

REACTIONS (3)
  - Renal stone removal [Unknown]
  - Nephrocalcinosis [Unknown]
  - Nephrolithiasis [Unknown]
